FAERS Safety Report 24036064 (Version 3)
Quarter: 2024Q3

REPORT INFORMATION
  Report Type: Spontaneous
  Country: GT (occurrence: GT)
  Receive Date: 20240701
  Receipt Date: 20240923
  Transmission Date: 20241016
  Serious: No
  Sender: PFIZER
  Company Number: GT-PFIZER INC-202400202374

PATIENT
  Sex: Female

DRUGS (1)
  1. GENOTROPIN [Suspect]
     Active Substance: SOMATROPIN
     Dosage: UNK

REACTIONS (2)
  - Device physical property issue [Unknown]
  - Device use error [Unknown]

NARRATIVE: CASE EVENT DATE: 20240626
